FAERS Safety Report 25320140 (Version 2)
Quarter: 2025Q2

REPORT INFORMATION
  Report Type: Spontaneous
  Country: US (occurrence: US)
  Receive Date: 20250515
  Receipt Date: 20250613
  Transmission Date: 20250716
  Serious: Yes (Hospitalization)
  Sender: ANI
  Company Number: US-ANIPHARMA-2025-US-018320

PATIENT
  Age: 63 Year
  Sex: Female
  Weight: 101.61 kg

DRUGS (14)
  1. CORTICOTROPIN [Suspect]
     Active Substance: CORTICOTROPIN
     Indication: Sarcoidosis
     Route: 058
     Dates: start: 202502
  2. LABETALOL [Concomitant]
     Active Substance: LABETALOL
  3. PANTOPRAZOLE [Concomitant]
     Active Substance: PANTOPRAZOLE
  4. FUROSEMIDE [Concomitant]
     Active Substance: FUROSEMIDE
  5. MYCOPHENOLIC ACID [Concomitant]
     Active Substance: MYCOPHENOLIC ACID
  6. PREGABALIN [Concomitant]
     Active Substance: PREGABALIN
  7. ELIQUIS [Suspect]
     Active Substance: APIXABAN
  8. Levoneer [Concomitant]
  9. OZEMPIC [Concomitant]
     Active Substance: SEMAGLUTIDE
  10. LINZESS [Concomitant]
     Active Substance: LINACLOTIDE
  11. ATENOLOL [Concomitant]
     Active Substance: ATENOLOL
  12. ATORVASTATIN [Concomitant]
     Active Substance: ATORVASTATIN
  13. SPIRONOLACTONE [Concomitant]
     Active Substance: SPIRONOLACTONE
  14. ELIQUIS [Concomitant]
     Active Substance: APIXABAN

REACTIONS (8)
  - Bone pain [Recovered/Resolved]
  - Headache [Recovering/Resolving]
  - Muscle spasms [Unknown]
  - Contraindicated product administered [Not Recovered/Not Resolved]
  - Renal disorder [Unknown]
  - Haemorrhage intracranial [Recovered/Resolved]
  - Lymphoedema [Unknown]
  - Condition aggravated [Unknown]

NARRATIVE: CASE EVENT DATE: 20250201
